FAERS Safety Report 20372990 (Version 4)
Quarter: 2022Q2

REPORT INFORMATION
  Report Type: Report from Study
  Country: DE (occurrence: DE)
  Receive Date: 20220125
  Receipt Date: 20220401
  Transmission Date: 20220720
  Serious: Yes (Death, Hospitalization, Other)
  Sender: FDA-Public Use
  Company Number: DE-BRISTOL-MYERS SQUIBB COMPANY-BMS-2022-007302

PATIENT
  Age: 56 Year
  Sex: Female
  Weight: 81 kg

DRUGS (3)
  1. NIVOLUMAB [Suspect]
     Active Substance: NIVOLUMAB
     Indication: Small cell lung cancer
     Dosage: 81.6 MILLIGRAM
     Route: 065
     Dates: start: 20220113, end: 20220113
  2. IPILIMUMAB [Suspect]
     Active Substance: IPILIMUMAB
     Indication: Small cell lung cancer
     Dosage: 244.8 MILLIGRAM
     Route: 065
     Dates: start: 20220113, end: 20220113
  3. NIVOLUMAB [Suspect]
     Active Substance: NIVOLUMAB
     Indication: Small cell lung cancer
     Dosage: 81.6 MILLIGRAM
     Route: 065
     Dates: start: 20220113, end: 20220113

REACTIONS (2)
  - Pulmonary sepsis [Fatal]
  - Cancer pain [Not Recovered/Not Resolved]

NARRATIVE: CASE EVENT DATE: 20220114
